FAERS Safety Report 10382918 (Version 1)
Quarter: 2014Q3

REPORT INFORMATION
  Report Type: Spontaneous
  Country: US (occurrence: US)
  Receive Date: 20140813
  Receipt Date: 20140813
  Transmission Date: 20150326
  Serious: No
  Sender: FDA-Public Use
  Company Number: US-SA-2014SA033946

PATIENT
  Age: 44 Year
  Sex: Female
  Weight: 106.59 kg

DRUGS (24)
  1. FABRAZYME [Suspect]
     Active Substance: AGALSIDASE BETA
     Indication: FABRY^S DISEASE
     Dosage: DOSE AND FREQUENCY : 105 MG EVERY 2-3 WEEKS AS DIRECTED
     Route: 042
     Dates: start: 20110210
  2. METOPROLOL [Concomitant]
     Active Substance: METOPROLOL
  3. LIDOCAINE. [Concomitant]
     Active Substance: LIDOCAINE
  4. WATER FOR INJECTION [Concomitant]
     Active Substance: WATER
  5. XANAX [Concomitant]
     Active Substance: ALPRAZOLAM
  6. CELEBREX [Concomitant]
     Active Substance: CELECOXIB
  7. MOBIC [Concomitant]
     Active Substance: MELOXICAM
  8. DIPHENHYDRAMINE [Concomitant]
     Active Substance: DIPHENHYDRAMINE
  9. SOMA [Concomitant]
     Active Substance: CARISOPRODOL
  10. PRAVASTATIN [Concomitant]
     Active Substance: PRAVASTATIN\PRAVASTATIN SODIUM
  11. EPIPEN [Concomitant]
     Active Substance: EPINEPHRINE
  12. ROXICODONE [Concomitant]
     Active Substance: OXYCODONE HYDROCHLORIDE
  13. TRILEPTAL [Concomitant]
     Active Substance: OXCARBAZEPINE
  14. TOPAMAX [Concomitant]
     Active Substance: TOPIRAMATE
  15. ASPIRIN. [Concomitant]
     Active Substance: ASPIRIN
  16. FABRAZYME [Suspect]
     Active Substance: AGALSIDASE BETA
     Indication: FABRY^S DISEASE
     Dosage: DOSE AND FREQUENCY : 105 MG EVERY 2-3 WEEKS AS DIRECTED
     Route: 042
     Dates: start: 20110210
  17. ACETAMINOPHEN. [Concomitant]
     Active Substance: ACETAMINOPHEN
  18. HEPARIN [Concomitant]
     Active Substance: HEPARIN SODIUM
  19. NORMAL SALINE [Concomitant]
     Active Substance: SODIUM CHLORIDE
  20. SODIUM CHLORIDE. [Concomitant]
     Active Substance: SODIUM CHLORIDE
  21. MUCINEX [Concomitant]
     Active Substance: GUAIFENESIN
  22. LEXAPRO [Concomitant]
     Active Substance: ESCITALOPRAM OXALATE
  23. DEXILANT [Concomitant]
     Active Substance: DEXLANSOPRAZOLE
  24. SUDAFED [Concomitant]
     Active Substance: PSEUDOEPHEDRINE HYDROCHLORIDE

REACTIONS (2)
  - Bronchitis [Unknown]
  - Sinusitis [Unknown]
